FAERS Safety Report 7803709-2 (Version None)
Quarter: 2011Q4

REPORT INFORMATION
  Report Type: 
  Country: None (occurrence: None)
  Receive Date: 20111010
  Receipt Date: 20111003
  Transmission Date: 20120403
  Serious: Yes (Hospitalization)
  Sender: FDA-Public Use
  Company Number: US-BIOGENIDEC-2011BI038355

PATIENT
  Sex: Female

DRUGS (3)
  1. AVONEX [Suspect]
     Indication: MULTIPLE SCLEROSIS
     Route: 030
     Dates: start: 20080219
  2. BACLOFEN [Concomitant]
     Indication: MULTIPLE SCLEROSIS
  3. NSAID [Concomitant]

REACTIONS (9)
  - HEADACHE [None]
  - OPTIC NEURITIS [None]
  - VISUAL IMPAIRMENT [None]
  - GASTRITIS [None]
  - MULTIPLE SCLEROSIS [None]
  - MENTAL STATUS CHANGES [None]
  - ATAXIA [None]
  - CHEST PAIN [None]
  - URINARY RETENTION [None]
